FAERS Safety Report 9842311 (Version 1)
Quarter: 2014Q1

REPORT INFORMATION
  Report Type: Spontaneous
  Country: IT (occurrence: IT)
  Receive Date: 20140124
  Receipt Date: 20140124
  Transmission Date: 20141002
  Serious: Yes (Other)
  Sender: FDA-Public Use
  Company Number: IT-TEVA-456418ISR

PATIENT
  Age: 52 Year
  Sex: Female

DRUGS (1)
  1. CARBOPLATIO TEVA [Suspect]
     Indication: OVARIAN CANCER STAGE I
     Dosage: 600 MILLIGRAM DAILY;
     Route: 042
     Dates: start: 20131212, end: 20131212

REACTIONS (2)
  - Laryngospasm [Recovered/Resolved]
  - Rash [Recovered/Resolved]
